FAERS Safety Report 7971505-1 (Version None)
Quarter: 2011Q4

REPORT INFORMATION
  Report Type: 
  Country: None (occurrence: None)
  Receive Date: 20111212
  Receipt Date: 20111128
  Transmission Date: 20120403
  Serious: Yes (Other)
  Sender: FDA-Public Use
  Company Number: US-ELI_LILLY_AND_COMPANY-US201111009066

PATIENT
  Age: 90 Year
  Sex: Female

DRUGS (2)
  1. FOSAMAX [Concomitant]
  2. FORTEO [Suspect]
     Indication: OSTEOPOROSIS
     Dosage: 20 UG, QD

REACTIONS (3)
  - PELVIC FRACTURE [None]
  - RIB FRACTURE [None]
  - LOSS OF CONSCIOUSNESS [None]
